FAERS Safety Report 19912237 (Version 2)
Quarter: 2021Q4

REPORT INFORMATION
  Report Type: Spontaneous
  Country: US (occurrence: US)
  Receive Date: 20211004
  Receipt Date: 20211229
  Transmission Date: 20220303
  Serious: No
  Sender: FDA-Public Use
  Company Number: US-PFIZER INC-202101244284

PATIENT
  Age: 70 Year
  Sex: Female

DRUGS (5)
  1. IBRANCE [Suspect]
     Active Substance: PALBOCICLIB
     Indication: Brain neoplasm malignant
     Dosage: 100 MG
     Dates: start: 20210910
  2. IBRANCE [Suspect]
     Active Substance: PALBOCICLIB
     Indication: Breast cancer female
  3. IBRANCE [Suspect]
     Active Substance: PALBOCICLIB
     Indication: Bone cancer
  4. LETROZOLE [Concomitant]
     Active Substance: LETROZOLE
     Dosage: UNK
  5. XGEVA [Concomitant]
     Active Substance: DENOSUMAB
     Dosage: UNK

REACTIONS (3)
  - Hot flush [Unknown]
  - Feeling hot [Unknown]
  - Hyperhidrosis [Unknown]

NARRATIVE: CASE EVENT DATE: 20210101
